FAERS Safety Report 11410516 (Version 2)
Quarter: 2015Q3

REPORT INFORMATION
  Report Type: Report from Study
  Country: US (occurrence: US)
  Receive Date: 20150824
  Receipt Date: 20150902
  Transmission Date: 20151125
  Serious: Yes (Other)
  Sender: FDA-Public Use
  Company Number: US-ALXN-A201503136AA

PATIENT

DRUGS (2)
  1. SOLIRIS [Suspect]
     Active Substance: ECULIZUMAB
     Dosage: UNK, Q12D
     Route: 042
  2. SOLIRIS [Suspect]
     Active Substance: ECULIZUMAB
     Indication: PAROXYSMAL NOCTURNAL HAEMOGLOBINURIA
     Dosage: UNK, Q2W
     Route: 042

REACTIONS (5)
  - Unevaluable event [Unknown]
  - Reticulocyte count abnormal [Unknown]
  - Blood count abnormal [Unknown]
  - Haemoglobin abnormal [Unknown]
  - Extravascular haemolysis [Unknown]

NARRATIVE: CASE EVENT DATE: 201508
